FAERS Safety Report 8053986-0 (Version None)
Quarter: 2012Q1

REPORT INFORMATION
  Report Type: 
  Country: None (occurrence: None)
  Receive Date: 20120118
  Receipt Date: 20120111
  Transmission Date: 20120608
  Serious: Yes (Other)
  Sender: FDA-Public Use
  Company Number: US-ABBOTT-12P-163-0893043-00

PATIENT
  Sex: Female
  Weight: 72.64 kg

DRUGS (4)
  1. CERTRALINE [Concomitant]
     Indication: PRODUCT USED FOR UNKNOWN INDICATION
  2. HUMIRA [Suspect]
     Indication: PSORIATIC ARTHROPATHY
  3. OMEPRAZOLE [Concomitant]
     Indication: DYSPEPSIA
  4. HUMIRA [Suspect]
     Indication: PSORIASIS
     Route: 058
     Dates: start: 20111119

REACTIONS (8)
  - HYPOAESTHESIA [None]
  - DEPRESSION [None]
  - DYSPEPSIA [None]
  - BENIGN BONE NEOPLASM [None]
  - LYMPH GLAND INFECTION [None]
  - POLLAKIURIA [None]
  - FATIGUE [None]
  - THIRST [None]
